FAERS Safety Report 8936184 (Version 1)
Quarter: 2012Q4

REPORT INFORMATION
  Report Type: 
  Country: US (occurrence: US)
  Receive Date: 20121130
  Receipt Date: 20121130
  Transmission Date: 20130627
  Serious: No
  Sender: FDA-Public Use
  Company Number: US-ABBOTT-12P-163-0976842-00

PATIENT
  Age: 56 Year
  Sex: Male
  Weight: 95.34 kg

DRUGS (5)
  1. ANDROGEL [Suspect]
     Indication: BLOOD TESTOSTERONE DECREASED
     Dosage: 2 pumps daily
     Dates: start: 201208, end: 20120831
  2. MORPHINE [Concomitant]
     Indication: BACK DISORDER
  3. HYDROCODONE [Concomitant]
     Indication: BACK DISORDER
  4. SOMA [Concomitant]
     Indication: BACK DISORDER
  5. CYMBALTA [Concomitant]
     Indication: BACK DISORDER

REACTIONS (2)
  - Drug ineffective [Not Recovered/Not Resolved]
  - Drug ineffective [Not Recovered/Not Resolved]
